FAERS Safety Report 4800432-3 (Version None)
Quarter: 2005Q4

REPORT INFORMATION
  Report Type: 
  Country: None (occurrence: None)
  Receive Date: 20051011
  Receipt Date: 20050926
  Transmission Date: 20060501
  Serious: Yes (Hospitalization)
  Sender: FDA-Public Use
  Company Number: THYM-10632

PATIENT
  Age: 66 Year
  Sex: Male
  Weight: 101 kg

DRUGS (12)
  1. THYMOGLOBULIN [Suspect]
     Indication: APLASTIC ANAEMIA
     Dosage: 3.5 MG/KG IV
     Route: 042
     Dates: start: 20050514, end: 20050518
  2. THYMOGLOBULIN [Suspect]
     Indication: IMMUNOSUPPRESSANT DRUG THERAPY
     Dosage: 3.5 MG/KG IV
     Route: 042
     Dates: start: 20050514, end: 20050518
  3. CYCLOSPORINE [Concomitant]
  4. PREVACID [Concomitant]
  5. PREDNISONE TAB [Concomitant]
  6. FAMVIR [Concomitant]
  7. LANTUS [Concomitant]
  8. FLAGYL [Concomitant]
  9. VANCOMYCIN [Concomitant]
  10. ZOSYN [Concomitant]
  11. GENTAMICIN [Concomitant]
  12. DIFLUCAN [Concomitant]

REACTIONS (1)
  - FEBRILE NEUTROPENIA [None]
